FAERS Safety Report 14212113 (Version 1)
Quarter: 2017Q4

REPORT INFORMATION
  Report Type: Spontaneous
  Country: US (occurrence: None)
  Receive Date: 20171121
  Receipt Date: 20171121
  Transmission Date: 20180321
  Serious: Yes (Hospitalization)
  Sender: FDA-Public Use
  Company Number: None

PATIENT
  Age: 63 Year
  Sex: Female

DRUGS (4)
  1. CARVEDILOL. [Concomitant]
     Active Substance: CARVEDILOL
  2. PREVACID [Concomitant]
     Active Substance: LANSOPRAZOLE
  3. VENLAFAXINE [Concomitant]
     Active Substance: VENLAFAXINE HYDROCHLORIDE
  4. OCTREOTIDE 200MCG/ML [Suspect]
     Active Substance: OCTREOTIDE
     Indication: INTESTINAL FISTULA
     Route: 058
     Dates: start: 20170811

REACTIONS (1)
  - Surgery [None]
